FAERS Safety Report 7487009-9 (Version None)
Quarter: 2011Q2

REPORT INFORMATION
  Report Type: 
  Country: None (occurrence: None)
  Receive Date: 20110518
  Receipt Date: 20110516
  Transmission Date: 20111010
  Serious: Yes (Hospitalization)
  Sender: FDA-Public Use
  Company Number: US-BRISTOL-MYERS SQUIBB COMPANY-15747108

PATIENT
  Age: 19 Year
  Sex: Female

DRUGS (2)
  1. LUVOX [Concomitant]
  2. ABILIFY [Suspect]
     Dates: start: 20101201, end: 20110101

REACTIONS (2)
  - DYSTONIA [None]
  - COMA [None]
